FAERS Safety Report 10387752 (Version 2)
Quarter: 2014Q3

REPORT INFORMATION
  Report Type: Spontaneous
  Country: CA (occurrence: None)
  Receive Date: 20140813
  Receipt Date: 20140828
  Transmission Date: 20150326
  Serious: Yes (Death, Hospitalization)
  Sender: FDA-Public Use
  Company Number: CA-016704

PATIENT
  Age: 72 Year
  Sex: Male

DRUGS (3)
  1. SENOKOT-S [Concomitant]
     Active Substance: DOCUSATE SODIUM\SENNOSIDES
  2. RABEPRAZOLE [Concomitant]
     Active Substance: RABEPRAZOLE
  3. FIRMAGON [Suspect]
     Active Substance: DEGARELIX ACETATE
     Indication: PROSTATE CANCER
     Route: 058
     Dates: start: 20140704, end: 20140704

REACTIONS (2)
  - Infection [None]
  - Dyspnoea [None]

NARRATIVE: CASE EVENT DATE: 20140729
